FAERS Safety Report 8116057-0 (Version None)
Quarter: 2011Q4

REPORT INFORMATION
  Report Type: 
  Country: None (occurrence: None)
  Receive Date: 20111227
  Receipt Date: 20110930
  Transmission Date: 20120403
  Serious: Yes (Other)
  Sender: FDA-Public Use
  Company Number: PHHY2011US55237

PATIENT
  Age: 42 Year
  Sex: Female
  Weight: 64 kg

DRUGS (10)
  1. FAMPRIDINE (FAMPRIDINE) [Concomitant]
  2. BIOTIN (BIOTIN) [Concomitant]
  3. BACLOFEN [Concomitant]
  4. FISH OIL (FISH OIL) [Concomitant]
  5. ALEVE [Concomitant]
  6. MULTIVITAMIN [Concomitant]
  7. GINKGO BILOBA (GINKGO BILOBA) [Concomitant]
  8. AVONEX [Concomitant]
  9. GILENYA [Suspect]
     Indication: MULTIPLE SCLEROSIS
     Dosage: 0.5 MG, QD, ORAL
     Route: 048
     Dates: start: 20110517, end: 20110613
  10. CALTRATE (CALCIUM CARBONATE) [Concomitant]

REACTIONS (12)
  - PROTEIN TOTAL DECREASED [None]
  - BILIRUBIN CONJUGATED INCREASED [None]
  - MEAN PLATELET VOLUME DECREASED [None]
  - NAUSEA [None]
  - BLOOD ALBUMIN DECREASED [None]
  - MEAN CELL HAEMOGLOBIN INCREASED [None]
  - WHITE BLOOD CELL COUNT DECREASED [None]
  - RED CELL DISTRIBUTION WIDTH DECREASED [None]
  - BLOOD BILIRUBIN INCREASED [None]
  - MEAN CELL HAEMOGLOBIN CONCENTRATION INCREASED [None]
  - TRANSAMINASES INCREASED [None]
  - EOSINOPHIL PERCENTAGE DECREASED [None]
